FAERS Safety Report 8794090 (Version 1)
Quarter: 2012Q4

REPORT INFORMATION
  Report Type: 
  Country: US (occurrence: US)
  Receive Date: 20120918
  Receipt Date: 20120918
  Transmission Date: 20130627
  Serious: No
  Sender: FDA-Public Use
  Company Number: US-BAYER-2012-096849

PATIENT
  Age: 77 Year
  Sex: Male
  Weight: 111.11 kg

DRUGS (9)
  1. ALEVE CAPLET/TABLET,MIDOL EXTENDED RELIEF CAPLET [Suspect]
     Indication: ANALGESIC THERAPY
     Dosage: 2 DF, QD
     Route: 048
     Dates: start: 201208
  2. ALEVE CAPLET/TABLET,MIDOL EXTENDED RELIEF CAPLET [Suspect]
     Indication: ANALGESIC THERAPY
     Dosage: 4 DF, a day
     Route: 048
  3. COQ10 [Concomitant]
  4. ETOPOSIDE [Concomitant]
  5. MELATINE BENZOATE [Concomitant]
  6. TRILIPIX [Concomitant]
  7. LORATADINE [Concomitant]
  8. WARFARIN [Concomitant]
  9. VERAPAMIL [Concomitant]

REACTIONS (1)
  - Pain [None]
